FAERS Safety Report 9486800 (Version 1)
Quarter: 2013Q3

REPORT INFORMATION
  Report Type: Spontaneous
  Country: US (occurrence: US)
  Receive Date: 20130829
  Receipt Date: 20130829
  Transmission Date: 20140515
  Serious: Yes (Hospitalization)
  Sender: FDA-Public Use
  Company Number: US-BAYER-2013-101206

PATIENT
  Age: 32 Year
  Sex: Female
  Weight: 61.68 kg

DRUGS (1)
  1. MIRENA [Suspect]
     Dosage: 20 MCG/24HR, CONT
     Route: 015
     Dates: end: 20130516

REACTIONS (5)
  - Device dislocation [None]
  - Pain [None]
  - Emotional distress [None]
  - Fear of disease [None]
  - Discomfort [None]
